FAERS Safety Report 12252837 (Version 1)
Quarter: 2016Q2

REPORT INFORMATION
  Report Type: Spontaneous
  Country: US (occurrence: None)
  Receive Date: 20160408
  Receipt Date: 20160408
  Transmission Date: 20160815
  Serious: Yes (Hospitalization, Disabling)
  Sender: FDA-Public Use
  Company Number: None

PATIENT
  Age: 59 Year
  Sex: Female
  Weight: 67.13 kg

DRUGS (7)
  1. WP THYROID [Concomitant]
  2. QSYMIA [Suspect]
     Active Substance: PHENTERMINE HYDROCHLORIDE\TOPIRAMATE
     Indication: OBESITY
     Dosage: IN THE MORNING TAKEN BY MOUTH
     Route: 048
     Dates: start: 20140901, end: 20141211
  3. KEPPRA [Concomitant]
     Active Substance: LEVETIRACETAM
  4. FISH OIL [Concomitant]
     Active Substance: FISH OIL
  5. SPIRONOLACTONE. [Concomitant]
     Active Substance: SPIRONOLACTONE
  6. DIM [Concomitant]
  7. VITAMIN D [Concomitant]
     Active Substance: CHOLECALCIFEROL

REACTIONS (1)
  - Cerebral haemorrhage [None]

NARRATIVE: CASE EVENT DATE: 20141211
